FAERS Safety Report 12298756 (Version 2)
Quarter: 2016Q2

REPORT INFORMATION
  Report Type: Report from Study
  Country: JP (occurrence: JP)
  Receive Date: 20160425
  Receipt Date: 20160511
  Transmission Date: 20160815
  Serious: Yes (Hospitalization)
  Sender: FDA-Public Use
  Company Number: JP-VIFOR (INTERNATIONAL) INC.-VIT-2016-01725

PATIENT
  Age: 77 Year
  Sex: Female

DRUGS (14)
  1. FLUITRAN [Concomitant]
     Active Substance: TRICHLORMETHIAZIDE
     Indication: NEPHROSCLEROSIS
     Route: 048
     Dates: end: 20131009
  2. MIRCERA [Suspect]
     Active Substance: METHOXY POLYETHYLENE GLYCOL-EPOETIN BETA
     Indication: NEPHROGENIC ANAEMIA
     Route: 058
     Dates: start: 20121114, end: 20150415
  3. WARFARIN [Concomitant]
     Active Substance: WARFARIN
     Route: 048
  4. CARDENALIN [Concomitant]
     Active Substance: DOXAZOSIN MESYLATE
     Indication: NEPHROSCLEROSIS
     Route: 048
  5. LASIX [Concomitant]
     Active Substance: FUROSEMIDE
     Indication: NEPHROSCLEROSIS
     Route: 048
  6. PARIET [Concomitant]
     Active Substance: RABEPRAZOLE SODIUM
     Route: 048
  7. WARFARIN [Concomitant]
     Active Substance: WARFARIN
     Route: 048
  8. POLYFUL [Concomitant]
     Active Substance: CALCIUM POLYCARBOPHIL
     Route: 048
     Dates: end: 20141112
  9. ALDACTONE A [Concomitant]
     Active Substance: SPIRONOLACTONE
     Indication: NEPHROSCLEROSIS
     Route: 048
  10. AMLODIPINE [Concomitant]
     Active Substance: AMLODIPINE BESYLATE
     Route: 048
     Dates: start: 20141008
  11. BLOPRESS [Suspect]
     Active Substance: CANDESARTAN CILEXETIL
     Indication: PRODUCT USED FOR UNKNOWN INDICATION
     Route: 048
     Dates: start: 20131113, end: 20141008
  12. DIGOSIN [Concomitant]
     Active Substance: DIGOXIN
     Route: 048
  13. ALOSITOL [Concomitant]
     Active Substance: ALLOPURINOL
     Route: 048
  14. BIO-THREE [Concomitant]
     Active Substance: HERBALS
     Route: 048

REACTIONS (4)
  - Organising pneumonia [Unknown]
  - Interstitial lung disease [Not Recovered/Not Resolved]
  - Thrombocytopenia [Recovering/Resolving]
  - Gingival bleeding [Unknown]

NARRATIVE: CASE EVENT DATE: 201310
